FAERS Safety Report 7269790-7 (Version None)
Quarter: 2011Q1

REPORT INFORMATION
  Report Type: 
  Country: None (occurrence: None)
  Receive Date: 20110124
  Receipt Date: 20110111
  Transmission Date: 20110831
  Serious: Yes (Death, Life-Threatening, Hospitalization, Other)
  Sender: FDA-Public Use
  Company Number: 2009AC000374

PATIENT
  Age: 54 Year
  Sex: Female

DRUGS (65)
  1. DIGOXIN [Suspect]
     Dosage: 0.25 MG;PO
     Route: 048
     Dates: start: 20080128, end: 20080426
  2. DIGOXIN [Suspect]
     Indication: SUPRAVENTRICULAR TACHYCARDIA
     Dosage: .20 MG;QD;PO
     Route: 048
     Dates: start: 19951201, end: 20031106
  3. VITAMIN D [Concomitant]
  4. FISH OIL [Concomitant]
  5. LASIX [Concomitant]
  6. KENALOG [Concomitant]
  7. VIOXX [Concomitant]
  8. ALLEGRA [Concomitant]
  9. PROPECIA [Concomitant]
  10. ELAVIL [Concomitant]
  11. VITAMIN E [Concomitant]
  12. PREDNISONE [Concomitant]
  13. PHENERGAN [Concomitant]
  14. DIGOXIN [Suspect]
     Dosage: 0.20 MG;QD;PO
     Route: 048
     Dates: start: 20040101, end: 20080127
  15. TYLOX [Concomitant]
  16. SELDANE [Concomitant]
  17. TORADOL [Concomitant]
  18. MOL-ITRON [Concomitant]
  19. PRILOSEC [Concomitant]
  20. CALCIUM [Concomitant]
  21. FOLIC ACID [Concomitant]
  22. LANOXICAPS [Concomitant]
  23. MICRO-X [Concomitant]
  24. ZESTRIL [Concomitant]
  25. PREMARIN [Concomitant]
  26. TAGAMET [Concomitant]
  27. LIPITOR [Concomitant]
  28. PEPTO-BISMOL [Concomitant]
  29. *ALBUTEROL INHALER [Concomitant]
  30. DIGOXIN [Suspect]
     Dosage: .10 MG;QD;PO
     Route: 048
     Dates: start: 20031107, end: 20040101
  31. THESAGRAN M [Concomitant]
  32. CRESTOR [Concomitant]
  33. CELEBREX [Concomitant]
  34. PERCOCET [Concomitant]
  35. OXYGEN [Concomitant]
  36. ASPIRIN [Concomitant]
  37. GARLIC [Concomitant]
  38. COUMADIN [Concomitant]
  39. PRILOSEC [Concomitant]
  40. AZMACORT [Concomitant]
  41. PERCOCET [Concomitant]
  42. RELAFEN [Concomitant]
  43. MACRODANTIN [Concomitant]
  44. VIT B6 [Concomitant]
  45. DEMEROL [Concomitant]
  46. LASIX [Concomitant]
  47. LISINOPRIL [Concomitant]
  48. POTASSIUM CHLORIDE [Concomitant]
  49. MULTI-VITAMIN [Concomitant]
  50. ASCORBIC ACID [Concomitant]
  51. LISINOPRIL [Concomitant]
  52. CRESTOR [Concomitant]
  53. POTASSIUM [Concomitant]
  54. MDI [Concomitant]
  55. K-DUR [Concomitant]
  56. TYLOX [Concomitant]
  57. OXYCONTIN [Concomitant]
  58. METOPROLOL [Concomitant]
  59. DILAUDID [Concomitant]
  60. FLEXERIL [Concomitant]
  61. TYLENOL W/ CODEINE NO. 3 [Concomitant]
  62. SLO-BID [Concomitant]
  63. BENADRYL [Concomitant]
  64. KEFLEX [Concomitant]
  65. MORPHINE [Concomitant]

REACTIONS (12)
  - TOXICITY TO VARIOUS AGENTS [None]
  - OSTEOARTHRITIS [None]
  - HYPERCHOLESTEROLAEMIA [None]
  - SUDDEN CARDIAC DEATH [None]
  - ROTATOR CUFF SYNDROME [None]
  - PEPTIC ULCER [None]
  - HYPOXIA [None]
  - HYPERTENSION [None]
  - INTERNATIONAL NORMALISED RATIO INCREASED [None]
  - LEFT VENTRICULAR HYPERTROPHY [None]
  - PAIN [None]
  - CEREBROVASCULAR ACCIDENT [None]
